FAERS Safety Report 15542247 (Version 2)
Quarter: 2018Q4

REPORT INFORMATION
  Report Type: Spontaneous
  Country: US (occurrence: US)
  Receive Date: 20181023
  Receipt Date: 20181114
  Transmission Date: 20190205
  Serious: Yes (Other)
  Sender: FDA-Public Use
  Company Number: US-ASSERTIO THERAPEUTICS, INC.-US-2018DEP001834

PATIENT

DRUGS (1)
  1. GRALISE [Suspect]
     Active Substance: GABAPENTIN
     Indication: ESSENTIAL TREMOR
     Dosage: 300 MG, QD
     Route: 048
     Dates: start: 20180824, end: 2018

REACTIONS (6)
  - Abdominal pain upper [Unknown]
  - Drug dose titration not performed [Unknown]
  - Frequent bowel movements [Unknown]
  - Dyspepsia [Unknown]
  - Product use in unapproved indication [Unknown]
  - Amnesia [Not Recovered/Not Resolved]

NARRATIVE: CASE EVENT DATE: 2018
